FAERS Safety Report 24698323 (Version 1)
Quarter: 2024Q4

REPORT INFORMATION
  Report Type: Spontaneous
  Country: TR (occurrence: TR)
  Receive Date: 20241204
  Receipt Date: 20241204
  Transmission Date: 20250115
  Serious: Yes (Other)
  Sender: MERCK
  Company Number: TR-009507513-2412TUR000846

PATIENT
  Age: 68 Year
  Sex: Male

DRUGS (1)
  1. KEYTRUDA [Suspect]
     Active Substance: PEMBROLIZUMAB
     Indication: Non-small cell lung cancer
     Dosage: 200 MILLIGRAM, Q3W
     Route: 042
     Dates: start: 2019

REACTIONS (2)
  - Hypothyroidism [Recovered/Resolved]
  - Diabetes mellitus [Unknown]
